FAERS Safety Report 20094161 (Version 1)
Quarter: 2021Q4

REPORT INFORMATION
  Report Type: Spontaneous
  Country: FR (occurrence: FR)
  Receive Date: 20211122
  Receipt Date: 20211122
  Transmission Date: 20220303
  Serious: Yes (Hospitalization, Other)
  Sender: FDA-Public Use
  Company Number: FR-AFSSAPS-PP20210266

PATIENT
  Age: 61 Year
  Sex: Female
  Weight: 63 kg

DRUGS (7)
  1. PANTOPRAZOLE SODIUM [Suspect]
     Active Substance: PANTOPRAZOLE SODIUM
     Indication: Product used for unknown indication
     Dosage: 80 MILLIGRAM, ONCE A DAY
     Route: 041
     Dates: start: 20210221, end: 20210226
  2. AMOXICILLIN [Suspect]
     Active Substance: AMOXICILLIN
     Indication: Infection
     Dosage: 3 GRAM, ONCE A DAY
     Route: 041
     Dates: start: 20210223, end: 20210225
  3. AMOXICILLIN\CLAVULANIC ACID [Suspect]
     Active Substance: AMOXICILLIN\CLAVULANIC ACID
     Indication: Infection
     Dosage: 9 MILLIGRAM, ONCE A DAY
     Route: 041
     Dates: start: 20210223, end: 20210225
  4. CASPOFUNGIN ACETATE [Suspect]
     Active Substance: CASPOFUNGIN ACETATE
     Indication: Infection
     Dosage: 50 MILLIGRAM, ONCE A DAY
     Route: 041
     Dates: start: 20210221, end: 20210223
  5. IOMERON [Suspect]
     Active Substance: IOMEPROL
     Indication: Scan
     Dosage: UNK
     Route: 041
     Dates: start: 20210225, end: 20210225
  6. ESOMEPRAZOLE [Suspect]
     Active Substance: ESOMEPRAZOLE
     Indication: Gastrooesophageal reflux disease
     Dosage: 40 MILLIGRAM, ONCE A DAY
     Route: 048
     Dates: start: 20210219, end: 20210316
  7. PIPERACILLIN SODIUM\TAZOBACTAM SODIUM [Suspect]
     Active Substance: PIPERACILLIN SODIUM\TAZOBACTAM SODIUM
     Indication: Infection
     Dosage: 4 GRAM, ONCE A DAY
     Dates: start: 20210221, end: 20210223

REACTIONS (2)
  - Toxic epidermal necrolysis [Recovered/Resolved]
  - Drug reaction with eosinophilia and systemic symptoms [Recovered/Resolved]
